FAERS Safety Report 5654630-X (Version None)
Quarter: 2008Q1

REPORT INFORMATION
  Report Type: 
  Country: None (occurrence: None)
  Receive Date: 20080219
  Receipt Date: 20071025
  Transmission Date: 20080703
  Serious: No
  Sender: FDA-Public Use
  Company Number: WAES 0710USA05600

PATIENT
  Age: 65 Year
  Sex: Female

DRUGS (6)
  1. JANUVIA [Suspect]
     Indication: TYPE 2 DIABETES MELLITUS
     Dosage: 100 MG/DAILY/PO
     Route: 048
     Dates: start: 20071024
  2. ACTOS [Concomitant]
  3. BENICAR [Concomitant]
  4. SYNTHROID [Concomitant]
  5. ESTRADIOL [Concomitant]
  6. METFORMIN HCL [Concomitant]

REACTIONS (4)
  - BLOOD GLUCOSE DECREASED [None]
  - DIZZINESS [None]
  - DYSPNOEA [None]
  - NERVOUSNESS [None]
